FAERS Safety Report 11934237 (Version 1)
Quarter: 2016Q1

REPORT INFORMATION
  Report Type: Spontaneous
  Country: FR (occurrence: FR)
  Receive Date: 20160121
  Receipt Date: 20160121
  Transmission Date: 20160526
  Serious: Yes (Hospitalization)
  Sender: FDA-Public Use
  Company Number: FR-009507513-1601FRA004819

PATIENT
  Age: 77 Year
  Sex: Male

DRUGS (9)
  1. TAHOR [Suspect]
     Active Substance: ATORVASTATIN CALCIUM
     Dosage: 80 MG, IN THE EVENING
     Route: 048
     Dates: end: 20151130
  2. LAROXYL [Concomitant]
     Active Substance: AMITRIPTYLINE
     Dosage: 5 DROPS IN THE EVENING
  3. SERESTA [Concomitant]
     Active Substance: OXAZEPAM
     Dosage: 25 MG, AT BEDTIME
  4. EZETROL [Suspect]
     Active Substance: EZETIMIBE
     Dosage: 10 MG, IN THE MORNING
     Route: 048
     Dates: end: 20151130
  5. PERMIXON [Concomitant]
     Active Substance: SAW PALMETTO
     Dosage: 160 (UNIT NOT PROVIDED) IN THE MORNING AND EVENING, CURRENTLY STOPPED
  6. KARDEGIC [Concomitant]
     Active Substance: ASPIRIN LYSINE
     Dosage: 160 (UNIT NOT PROVIDED), IN THE MORNING
  7. XANAX [Concomitant]
     Active Substance: ALPRAZOLAM
     Dosage: 0.5 DF IN THE MORNING AND 0.5 DF AT MIDDAY, STRENGTH: 0.25 (UNIT NOT PROVIDED)
  8. OLMETEC [Concomitant]
     Active Substance: OLMESARTAN MEDOXOMIL
     Dosage: UNK
     Route: 048
  9. INEXIUM (ESOMEPRAZOLE MAGNESIUM) [Concomitant]
     Active Substance: ESOMEPRAZOLE MAGNESIUM
     Dosage: UNK

REACTIONS (1)
  - Polymyalgia rheumatica [Recovering/Resolving]

NARRATIVE: CASE EVENT DATE: 20151125
